FAERS Safety Report 15480652 (Version 2)
Quarter: 2018Q4

REPORT INFORMATION
  Report Type: Spontaneous
  Country: US (occurrence: US)
  Receive Date: 20181010
  Receipt Date: 20181115
  Transmission Date: 20190205
  Serious: No
  Sender: FDA-Public Use
  Company Number: US-ASTRAZENECA-2018SF17098

PATIENT
  Sex: Male
  Weight: 70.3 kg

DRUGS (1)
  1. SYMBICORT [Suspect]
     Active Substance: BUDESONIDE\FORMOTEROL FUMARATE DIHYDRATE
     Indication: CHRONIC OBSTRUCTIVE PULMONARY DISEASE
     Dosage: 160/4.5 UG, TWO PUFFS TWICE PER DAY
     Route: 055

REACTIONS (10)
  - Dry mouth [Unknown]
  - Hypertension [Unknown]
  - Off label use of device [Unknown]
  - Underdose [Unknown]
  - Dyspnoea [Unknown]
  - Intentional device misuse [Unknown]
  - Wrong technique in product usage process [Unknown]
  - Product use issue [Unknown]
  - Device malfunction [Unknown]
  - Tongue discolouration [Unknown]
